FAERS Safety Report 9746070 (Version 1)
Quarter: 2013Q4

REPORT INFORMATION
  Report Type: Spontaneous
  Country: IT (occurrence: IT)
  Receive Date: 20131211
  Receipt Date: 20131211
  Transmission Date: 20140711
  Serious: No
  Sender: FDA-Public Use
  Company Number: IT-GILEAD-2009-0023742

PATIENT
  Age: 33 Year
  Sex: Male

DRUGS (2)
  1. ATRIPLA [Suspect]
     Indication: HIV INFECTION
     Route: 048
     Dates: start: 20090624, end: 20090704
  2. BACTRIM [Concomitant]
     Indication: INFECTION
     Route: 048
     Dates: start: 20090624, end: 20090730

REACTIONS (1)
  - Rash macular [Recovered/Resolved]
